FAERS Safety Report 6308977-4 (Version None)
Quarter: 2009Q3

REPORT INFORMATION
  Report Type: 
  Country: None (occurrence: None)
  Receive Date: 20090813
  Receipt Date: 20090806
  Transmission Date: 20100115
  Serious: Yes (Other)
  Sender: FDA-Public Use
  Company Number: US-ABBOTT-09P-163-0589726-00

PATIENT
  Sex: Female
  Weight: 74.91 kg

DRUGS (11)
  1. SYNTHROID [Suspect]
     Indication: HYPOTHYROIDISM
     Dosage: UNKNOWN DOSE
     Dates: start: 19930101
  2. SYNTHROID [Suspect]
     Route: 048
  3. NEXIUM [Suspect]
     Indication: GASTROOESOPHAGEAL REFLUX DISEASE
     Route: 048
     Dates: start: 20090501
  4. NEXIUM [Suspect]
     Indication: OESOPHAGITIS
  5. NEXIUM [Suspect]
     Indication: OESOPHAGEAL SPASM
  6. ZOLOFT [Concomitant]
     Indication: DRUG USE FOR UNKNOWN INDICATION
     Dosage: PATIENT CUTS 25MG TAB IN HALF PRN
     Route: 048
     Dates: end: 20090701
  7. ZOLOFT [Concomitant]
     Route: 048
     Dates: start: 20090701
  8. VERAPAMIL [Concomitant]
     Indication: MIGRAINE PROPHYLAXIS
     Route: 048
  9. ALLEGRA D 24 HOUR [Concomitant]
     Indication: HYPERSENSITIVITY
     Route: 048
  10. VITAMIN D [Concomitant]
     Indication: DRUG USE FOR UNKNOWN INDICATION
     Route: 048
  11. MULTI-VITAMIN [Concomitant]
     Indication: DRUG USE FOR UNKNOWN INDICATION
     Route: 048

REACTIONS (10)
  - ALOPECIA [None]
  - BILIARY COLIC [None]
  - CHOLELITHIASIS [None]
  - FIBROMYALGIA [None]
  - GASTROOESOPHAGEAL REFLUX DISEASE [None]
  - NERVOUSNESS [None]
  - OESOPHAGEAL SPASM [None]
  - OESOPHAGITIS [None]
  - STRESS [None]
  - TREMOR [None]
